FAERS Safety Report 5145405-9 (Version None)
Quarter: 2006Q4

REPORT INFORMATION
  Report Type: 
  Country: None (occurrence: None)
  Receive Date: 20061026
  Receipt Date: 20061015
  Transmission Date: 20070319
  Serious: Yes (Other)
  Sender: FDA-Public Use
  Company Number: 200610301BBE

PATIENT
  Age: 10 Month
  Sex: Male

DRUGS (2)
  1. IGIV (MANUFACTURER UNKNOWN) [Suspect]
     Indication: KAWASAKI'S DISEASE
  2. FLURBIPROFEN [Suspect]
     Dosage: 4 MG/KG

REACTIONS (8)
  - ALANINE AMINOTRANSFERASE INCREASED [None]
  - ANAEMIA [None]
  - ASPARTATE AMINOTRANSFERASE INCREASED [None]
  - DUODENAL ULCER [None]
  - GASTROINTESTINAL HAEMORRHAGE [None]
  - HAEMATOCHEZIA [None]
  - HELICOBACTER PYLORI IDENTIFICATION TEST POSITIVE [None]
  - INFLAMMATION [None]
